FAERS Safety Report 17730595 (Version 1)
Quarter: 2020Q2

REPORT INFORMATION
  Report Type: Spontaneous
  Country: US (occurrence: US)
  Receive Date: 20200430
  Receipt Date: 20200430
  Transmission Date: 20200714
  Serious: Yes (Other)
  Sender: FDA-Public Use
  Company Number: US-009507513-2004USA008018

PATIENT
  Age: 72 Year
  Sex: Male

DRUGS (2)
  1. FLUOROURACIL. [Suspect]
     Active Substance: FLUOROURACIL
  2. KEYTRUDA [Suspect]
     Active Substance: PEMBROLIZUMAB
     Indication: OESOPHAGEAL ADENOCARCINOMA
     Dosage: UNK
     Route: 042
     Dates: start: 20200317

REACTIONS (13)
  - Neuropathy peripheral [Unknown]
  - Spinal pain [Unknown]
  - Malignant neoplasm progression [Unknown]
  - Surgery [Unknown]
  - Stress fracture [Unknown]
  - Feeling abnormal [Unknown]
  - Musculoskeletal chest pain [Unknown]
  - Cervical vertebral fracture [Unknown]
  - Musculoskeletal chest pain [Unknown]
  - Pain in extremity [Unknown]
  - Coccydynia [Unknown]
  - Pain in extremity [Unknown]
  - Myalgia [Unknown]

NARRATIVE: CASE EVENT DATE: 2020
